FAERS Safety Report 6803084-6 (Version None)
Quarter: 2010Q2

REPORT INFORMATION
  Report Type: 
  Country: None (occurrence: None)
  Receive Date: 20100628
  Receipt Date: 20100617
  Transmission Date: 20101027
  Serious: Yes (Death, Other)
  Sender: FDA-Public Use
  Company Number: NL-SANOFI-AVENTIS-2010SA034954

PATIENT
  Age: 81 Year
  Sex: Male

DRUGS (11)
  1. OXALIPLATIN [Suspect]
     Indication: COLORECTAL CANCER
     Route: 041
     Dates: start: 20080411, end: 20080411
  2. OXALIPLATIN [Suspect]
     Route: 041
     Dates: start: 20090713, end: 20090713
  3. BEVACIZUMAB [Suspect]
     Indication: COLORECTAL CANCER
     Route: 042
     Dates: start: 20080411, end: 20080411
  4. BEVACIZUMAB [Suspect]
     Route: 042
     Dates: start: 20090713, end: 20090713
  5. CAPECITABINE [Suspect]
     Indication: COLORECTAL CANCER
     Route: 048
     Dates: start: 20080411, end: 20080411
  6. CAPECITABINE [Suspect]
     Route: 048
     Dates: start: 20090721, end: 20090721
  7. FUROSEMIDE [Concomitant]
  8. SPIRONOLACTONE [Concomitant]
  9. METOCLOPRAMIDE [Concomitant]
  10. TRAMADOL HCL [Concomitant]
  11. MOVICOLON [Concomitant]

REACTIONS (6)
  - ABDOMINAL PAIN [None]
  - ASCITES [None]
  - HYPOPHAGIA [None]
  - NAUSEA [None]
  - SUDDEN DEATH [None]
  - VOMITING [None]
